FAERS Safety Report 17041797 (Version 1)
Quarter: 2019Q4

REPORT INFORMATION
  Report Type: Report from Study
  Country: US (occurrence: US)
  Receive Date: 20191118
  Receipt Date: 20191118
  Transmission Date: 20200122
  Serious: No
  Sender: FDA-Public Use
  Company Number: NVSC2019US015592

PATIENT
  Sex: Female

DRUGS (1)
  1. ENTRESTO [Suspect]
     Active Substance: SACUBITRIL\VALSARTAN
     Indication: CARDIAC FAILURE
     Dosage: 1 DF (24 MG SACUBITRIL /26 MG VALSARTAN), QD
     Route: 048

REACTIONS (3)
  - Inappropriate schedule of product administration [Unknown]
  - Underdose [Unknown]
  - Intentional product misuse [Unknown]
